FAERS Safety Report 21665567 (Version 1)
Quarter: 2022Q4

REPORT INFORMATION
  Report Type: Spontaneous
  Country: JP (occurrence: JP)
  Receive Date: 20221201
  Receipt Date: 20221201
  Transmission Date: 20230112
  Serious: Yes (Hospitalization)
  Sender: FDA-Public Use
  Company Number: JP-002147023-NVSJ2022JP101926

PATIENT
  Age: 79 Year
  Sex: Female

DRUGS (1)
  1. ENTRESTO [Suspect]
     Active Substance: SACUBITRIL\VALSARTAN
     Indication: Product used for unknown indication
     Dosage: BID (1 TABLET IN THE MORNING AND 0.5 TABLET IN THE EVENING)
     Route: 048

REACTIONS (3)
  - Tuberculosis [Unknown]
  - Wrong technique in product usage process [Unknown]
  - Underdose [Unknown]
